FAERS Safety Report 6204891-3 (Version None)
Quarter: 2009Q2

REPORT INFORMATION
  Report Type: 
  Country: None (occurrence: None)
  Receive Date: 20090527
  Receipt Date: 20090519
  Transmission Date: 20091009
  Serious: Yes (Hospitalization, Other)
  Sender: FDA-Public Use
  Company Number: US-MERCK-0809USA03568

PATIENT
  Age: 54 Year
  Sex: Female

DRUGS (3)
  1. FOSAMAX [Suspect]
     Indication: POSTMENOPAUSE
     Route: 048
     Dates: start: 20000101
  2. FOSAMAX [Suspect]
     Route: 048
     Dates: start: 20020801
  3. ZOMETA [Concomitant]
     Route: 065
     Dates: start: 20000101

REACTIONS (49)
  - ABSCESS [None]
  - ADVERSE DRUG REACTION [None]
  - ANGINA PECTORIS [None]
  - ANXIETY [None]
  - ARTERIOSCLEROSIS CORONARY ARTERY [None]
  - BLADDER DISORDER [None]
  - BREAST DISORDER [None]
  - CEREBROVASCULAR ACCIDENT [None]
  - CEREBROVASCULAR DISORDER [None]
  - CHRONIC OBSTRUCTIVE PULMONARY DISEASE [None]
  - CORNEAL ABRASION [None]
  - CYSTOCELE [None]
  - DEMENTIA [None]
  - DIARRHOEA [None]
  - DIVERTICULUM [None]
  - DRUG HYPERSENSITIVITY [None]
  - DYSPNOEA EXERTIONAL [None]
  - ECCHYMOSIS [None]
  - EMOTIONAL DISTRESS [None]
  - EMPHYSEMA [None]
  - ENTEROCELE [None]
  - EXCORIATION [None]
  - FALL [None]
  - FALLOPIAN TUBE DISORDER [None]
  - FOOT FRACTURE [None]
  - HYPERCHOLESTEROLAEMIA [None]
  - HYPERSENSITIVITY [None]
  - HYPERTENSION [None]
  - INTESTINAL POLYP [None]
  - LUNG NEOPLASM MALIGNANT [None]
  - MAJOR DEPRESSION [None]
  - MUSCLE TIGHTNESS [None]
  - MYOCARDIAL INFARCTION [None]
  - NEUROPATHY PERIPHERAL [None]
  - OSTEONECROSIS [None]
  - PELVIC ADHESIONS [None]
  - POSTMENOPAUSAL HAEMORRHAGE [None]
  - RECTOCELE [None]
  - RIB FRACTURE [None]
  - ROTATOR CUFF SYNDROME [None]
  - SINUS DISORDER [None]
  - SINUSITIS [None]
  - SKIN LACERATION [None]
  - SLEEP APNOEA SYNDROME [None]
  - SYNCOPE [None]
  - TACHYCARDIA [None]
  - THROAT IRRITATION [None]
  - TOOTH DISORDER [None]
  - UTERINE DISORDER [None]
